FAERS Safety Report 9652211 (Version 1)
Quarter: 2013Q4

REPORT INFORMATION
  Report Type: Spontaneous
  Country: US (occurrence: None)
  Receive Date: 20131028
  Receipt Date: 20131028
  Transmission Date: 20140711
  Serious: Yes (Disabling)
  Sender: FDA-Public Use
  Company Number: None

PATIENT
  Age: 53 Year
  Sex: Female

DRUGS (1)
  1. LOVASTATIN [Suspect]
     Route: 048

REACTIONS (5)
  - Arthritis [None]
  - Nervous system neoplasm [None]
  - Muscle disorder [None]
  - Myalgia [None]
  - Unevaluable event [None]
